FAERS Safety Report 6852532-4 (Version None)
Quarter: 2010Q3

REPORT INFORMATION
  Report Type: 
  Country: None (occurrence: None)
  Receive Date: 20100717
  Receipt Date: 20071217
  Transmission Date: 20110219
  Serious: No
  Sender: FDA-Public Use
  Company Number: US-PFIZER INC-2007096197

PATIENT
  Sex: Female
  Weight: 97.3 kg

DRUGS (5)
  1. CHANTIX [Suspect]
     Indication: SMOKING CESSATION THERAPY
     Route: 048
     Dates: start: 20071029, end: 20071112
  2. WARFARIN SODIUM [Suspect]
     Dates: start: 20070101
  3. BUPRENORPHINE HCL AND NALOXONE HCL [Concomitant]
  4. KLONOPIN [Concomitant]
  5. GABAPENTIN [Concomitant]

REACTIONS (7)
  - DRUG EFFECT DECREASED [None]
  - FATIGUE [None]
  - INTERNATIONAL NORMALISED RATIO DECREASED [None]
  - PLEURITIC PAIN [None]
  - PROTHROMBIN TIME PROLONGED [None]
  - PROTHROMBIN TIME RATIO DECREASED [None]
  - SOMNOLENCE [None]
